FAERS Safety Report 25266239 (Version 4)
Quarter: 2025Q3

REPORT INFORMATION
  Report Type: Spontaneous
  Country: US (occurrence: US)
  Receive Date: 20250504
  Receipt Date: 20250827
  Transmission Date: 20251021
  Serious: Yes (Other)
  Sender: SANOFI AVENTIS
  Company Number: US-SA-2025SA123849

PATIENT
  Age: 66 Year
  Sex: Female
  Weight: 90 kg

DRUGS (43)
  1. DUPIXENT [Suspect]
     Active Substance: DUPILUMAB
     Indication: Asthma
     Dosage: 300 MG, QOW
     Route: 058
  2. PREDNISONE [Suspect]
     Active Substance: PREDNISONE
  3. GAMMAGARD [Suspect]
     Active Substance: HUMAN IMMUNOGLOBULIN G
  4. MOUNJARO [Concomitant]
     Active Substance: TIRZEPATIDE
  5. ACTEMRA [Concomitant]
     Active Substance: TOCILIZUMAB
  6. AZITHROMYCIN [Concomitant]
     Active Substance: AZITHROMYCIN
  7. ROSUVASTATIN CALCIUM [Concomitant]
     Active Substance: ROSUVASTATIN CALCIUM
  8. ROPINIROLE [Concomitant]
     Active Substance: ROPINIROLE
     Dosage: UNK, QD
  9. PROTONIX [Concomitant]
     Active Substance: PANTOPRAZOLE SODIUM
  10. BUDESONIDE [Concomitant]
     Active Substance: BUDESONIDE
  11. NYSTATIN [Concomitant]
     Active Substance: NYSTATIN
     Route: 048
  12. SODIUM CHLORIDE [Concomitant]
     Active Substance: SODIUM CHLORIDE
  13. LIDOCAINE [Concomitant]
     Active Substance: LIDOCAINE
  14. EPINEPHRINE [Concomitant]
     Active Substance: EPINEPHRINE
  15. DIPHENHYDRAMINE HYDROCHLORIDE [Concomitant]
     Active Substance: DIPHENHYDRAMINE HYDROCHLORIDE
  16. ACETAMINOPHEN [Concomitant]
     Active Substance: ACETAMINOPHEN
  17. BREZTRI AEROSPHERE [BUDESONIDE;FORMOTEROL FUMARATE;GLYCOPYRRONIUM BROM [Concomitant]
  18. GAMMAGARD LIQUID [Concomitant]
     Active Substance: HUMAN IMMUNOGLOBULIN G
  19. ASTEPRO [Concomitant]
     Active Substance: AZELASTINE HYDROCHLORIDE
  20. VALSARTAN [Concomitant]
     Active Substance: VALSARTAN
  21. LEVSIN SL [Concomitant]
     Active Substance: HYOSCYAMINE SULFATE
     Route: 060
  22. ALBUTEROL SULFATE [Concomitant]
     Active Substance: ALBUTEROL SULFATE
  23. ASPIRIN [Concomitant]
     Active Substance: ASPIRIN
  24. VITAMIN D3 [Concomitant]
     Active Substance: CHOLECALCIFEROL
  25. NITROGLYCERIN [Concomitant]
     Active Substance: NITROGLYCERIN
     Route: 060
  26. SYNTHROID [Concomitant]
     Active Substance: LEVOTHYROXINE SODIUM
  27. GOODY^S EXTRA STRENGTH [Concomitant]
  28. FLUTICASONE PROPIONATE [Concomitant]
     Active Substance: FLUTICASONE PROPIONATE
  29. SINGULAIR [Concomitant]
     Active Substance: MONTELUKAST SODIUM
  30. FLUTICASONE PROPIONATE [Concomitant]
     Active Substance: FLUTICASONE PROPIONATE
  31. CEFDINIR [Concomitant]
     Active Substance: CEFDINIR
  32. MOMETASONE FUROATE [Concomitant]
     Active Substance: MOMETASONE FUROATE
  33. VENTOLIN HFA [Concomitant]
     Active Substance: ALBUTEROL SULFATE
  34. SYMBICORT [Concomitant]
     Active Substance: BUDESONIDE\FORMOTEROL FUMARATE DIHYDRATE
  35. AMBIEN [Concomitant]
     Active Substance: ZOLPIDEM TARTRATE
  36. ROPINIROLE HYDROCHLORIDE [Concomitant]
     Active Substance: ROPINIROLE HYDROCHLORIDE
  37. ALBUTEROL SULFATE [Concomitant]
     Active Substance: ALBUTEROL SULFATE
  38. PREVACID [Concomitant]
     Active Substance: LANSOPRAZOLE
  39. DOXYCYCLINE HYCLATE [Concomitant]
     Active Substance: DOXYCYCLINE HYCLATE
  40. FLONASE ALLERGY RELIEF [Concomitant]
     Active Substance: FLUTICASONE PROPIONATE
  41. MUCINEX [Concomitant]
     Active Substance: GUAIFENESIN
  42. XOLAIR [Concomitant]
     Active Substance: OMALIZUMAB
  43. ASPIRIN [Concomitant]
     Active Substance: ASPIRIN

REACTIONS (9)
  - Steroid diabetes [Unknown]
  - Glycosylated haemoglobin increased [Unknown]
  - Hepatic enzyme increased [Unknown]
  - Temperature intolerance [Unknown]
  - Photosensitivity reaction [Unknown]
  - Skin swelling [Unknown]
  - Erythema [Unknown]
  - Pruritus [Recovered/Resolved]
  - Urticaria [Recovered/Resolved]
